FAERS Safety Report 9801195 (Version 2)
Quarter: 2014Q1

REPORT INFORMATION
  Report Type: Spontaneous
  Country: US (occurrence: US)
  Receive Date: 20140107
  Receipt Date: 20140107
  Transmission Date: 20141002
  Serious: No
  Sender: FDA-Public Use
  Company Number: US-VERTEX PHARMACEUTICALS INC-2013-011097

PATIENT
  Age: 57 Year
  Sex: Female
  Weight: 123.81 kg

DRUGS (6)
  1. INCIVEK [Suspect]
     Indication: HEPATITIS C
     Dosage: 2 DF, TID
     Route: 048
     Dates: start: 20131029
  2. INCIVEK [Suspect]
     Dosage: 3 PILLS BID
     Route: 048
  3. RIBASPHERE [Suspect]
     Indication: HEPATITIS C
     Dosage: 2 PILLS
     Route: 048
     Dates: start: 20131029
  4. RIBASPHERE [Suspect]
     Dosage: 2 PILLS, QD
     Route: 048
  5. PEGASYS [Suspect]
     Indication: HEPATITIS C
     Dosage: 180 ?G, QW
     Route: 058
     Dates: start: 20131029
  6. LEXAPRO [Concomitant]
     Indication: DEPRESSION
     Dosage: 20 MG, QD

REACTIONS (8)
  - Inappropriate schedule of drug administration [Unknown]
  - Dizziness [Not Recovered/Not Resolved]
  - Dyspnoea [Not Recovered/Not Resolved]
  - Gingival blister [Not Recovered/Not Resolved]
  - Oral pain [Not Recovered/Not Resolved]
  - Fatigue [Not Recovered/Not Resolved]
  - Asthenia [Not Recovered/Not Resolved]
  - Anaemia [Not Recovered/Not Resolved]
